FAERS Safety Report 5900273-X (Version None)
Quarter: 2008Q3

REPORT INFORMATION
  Report Type: 
  Country: None (occurrence: None)
  Receive Date: 20080926
  Receipt Date: 20080922
  Transmission Date: 20090109
  Serious: Yes (Other)
  Sender: FDA-Public Use
  Company Number: PHHY2008DE22347

PATIENT
  Sex: Male

DRUGS (1)
  1. DIOVAN [Suspect]
     Dosage: 160 MG, UNK
     Dates: start: 20080101, end: 20080801

REACTIONS (5)
  - AGGRESSION [None]
  - DEPRESSED MOOD [None]
  - EPISTAXIS [None]
  - INTENTIONAL DRUG MISUSE [None]
  - NERVOUSNESS [None]
